FAERS Safety Report 6931103-5 (Version None)
Quarter: 2010Q3

REPORT INFORMATION
  Report Type: 
  Country: None (occurrence: None)
  Receive Date: 20100818
  Receipt Date: 20100809
  Transmission Date: 20110219
  Serious: Yes (Other)
  Sender: FDA-Public Use
  Company Number: US-AMGEN-QUU409138

PATIENT
  Sex: Female
  Weight: 60.8 kg

DRUGS (8)
  1. ENBREL [Suspect]
     Indication: RHEUMATOID ARTHRITIS
     Route: 058
     Dates: start: 20080301, end: 20090301
  2. NORVASC [Concomitant]
     Route: 048
     Dates: start: 20090701
  3. SYNTHROID [Concomitant]
     Route: 048
     Dates: start: 19980501
  4. ZOLOFT [Concomitant]
     Dates: start: 20090701
  5. EPA-DHA [Concomitant]
     Dates: start: 20090701, end: 20100401
  6. CALCIUM WITH VITAMIN D [Concomitant]
     Dates: start: 20050101
  7. PRENATAL VITAMINS [Concomitant]
     Dates: start: 20090701, end: 20100401
  8. CALCIUM CARBONATE/VITAMIN D [Concomitant]
     Dates: start: 20050101

REACTIONS (8)
  - BLOOD PRESSURE INCREASED [None]
  - CAESAREAN SECTION [None]
  - HYPOTENSION [None]
  - INJECTION SITE HAEMORRHAGE [None]
  - JOINT STIFFNESS [None]
  - PRE-ECLAMPSIA [None]
  - RHEUMATOID ARTHRITIS [None]
  - UNDERDOSE [None]
